FAERS Safety Report 8737888 (Version 2)
Quarter: 2012Q4

REPORT INFORMATION
  Report Type: 
  Country: JP (occurrence: JP)
  Receive Date: 20120823
  Receipt Date: 20121205
  Transmission Date: 20130627
  Serious: Yes (Hospitalization, Other)
  Sender: FDA-Public Use
  Company Number: JP-MERCK-2012SP017012

PATIENT
  Age: 77 Year
  Sex: Female
  Weight: 62 kg

DRUGS (19)
  1. PEGINTERFERON ALFA-2B [Suspect]
     Indication: CHRONIC HEPATITIS C
     Dosage: 1.3 Microgram per kilogram, qw
     Route: 058
     Dates: start: 20120127, end: 20120209
  2. PEGINTERFERON ALFA-2B [Suspect]
     Dosage: 0.96 Microgram per kilogram, qw
     Route: 058
     Dates: start: 20120216, end: 20120216
  3. PEGINTERFERON ALFA-2B [Suspect]
     Dosage: 0.32 Microgram per kilogram, qw
     Route: 058
     Dates: start: 20120223
  4. PEGINTERFERON ALFA-2B [Suspect]
     Dosage: 0.3 Microgram per kilogram, qw
     Route: 058
     Dates: end: 20120315
  5. PEGINTERFERON ALFA-2B [Suspect]
     Dosage: 0.6 Microgram per kilogram, UNK
     Route: 058
     Dates: start: 20120322, end: 20120329
  6. PEGINTERFERON ALFA-2B [Suspect]
     Dosage: 0.8 Microgram per kilogram, qw
     Route: 058
     Dates: start: 20120405, end: 20120426
  7. PEGINTERFERON ALFA-2B [Suspect]
     Dosage: 0.6 Microgram per kilogram, UNK
     Route: 058
     Dates: start: 20120510, end: 20120510
  8. REBETOL [Suspect]
     Indication: CHRONIC HEPATITIS C
     Dosage: 600 mg, QD
     Route: 048
     Dates: start: 20120127, end: 20120202
  9. REBETOL [Suspect]
     Dosage: 400 mg, QD
     Route: 048
     Dates: start: 20120203, end: 20120216
  10. REBETOL [Suspect]
     Dosage: 200 mg, QD
     Route: 048
     Dates: start: 20120217, end: 20120223
  11. REBETOL [Suspect]
     Dosage: 200 mg, qd
     Route: 048
     Dates: end: 20120531
  12. TELAVIC [Suspect]
     Indication: CHRONIC HEPATITIS C
     Dosage: 2250 mg, qd
     Route: 048
     Dates: start: 20120127, end: 20120202
  13. TELAVIC [Suspect]
     Dosage: 1500 mg, qd
     Route: 048
     Dates: start: 20120203, end: 20120223
  14. TELAVIC [Suspect]
     Dosage: 750 mg, qd
     Route: 048
     Dates: start: 20120405, end: 20120419
  15. DEPAS [Suspect]
     Indication: ADVERSE EVENT
     Dosage: 1 DF, qd
     Route: 048
  16. DEPAS [Suspect]
     Dosage: 2 DF, qd
     Route: 048
     Dates: start: 20120510, end: 20120524
  17. DEPAS [Suspect]
     Dosage: 1 DF, UNK
     Route: 048
     Dates: start: 20120524
  18. URSO [Concomitant]
     Indication: CHRONIC HEPATITIS C
     Dosage: 6 DF, qd
     Route: 048
  19. [COMPOSITION UNSPECIFIED] [Concomitant]
     Route: 065

REACTIONS (16)
  - Decreased appetite [Not Recovered/Not Resolved]
  - Loss of consciousness [Recovered/Resolved]
  - Rash [None]
  - Pruritus [None]
  - Hyperuricaemia [None]
  - Aphagia [None]
  - Renal disorder [None]
  - Bradycardia [None]
  - Renal impairment [None]
  - Depression [None]
  - Dysphonia [None]
  - Asthenia [None]
  - Altered state of consciousness [None]
  - Incontinence [None]
  - Presyncope [None]
  - Mobility decreased [None]
